FAERS Safety Report 5340553-2 (Version None)
Quarter: 2007Q2

REPORT INFORMATION
  Report Type: 
  Country: None (occurrence: None)
  Receive Date: 20070405
  Receipt Date: 20070126
  Transmission Date: 20071010
  Serious: No
  Sender: FDA-Public Use
  Company Number: US200701005492

PATIENT
  Age: 76 Year
  Sex: Female

DRUGS (5)
  1. CYMBALTA [Suspect]
     Indication: OSTEOARTHRITIS
     Dosage: 60 MG, DAILY (1/D)
     Dates: start: 20061201
  2. SYNTHROID (LEVORHYROXINE SODIUM) [Concomitant]
  3. NIFEDIPINE [Concomitant]
  4. LOVASTATIN [Concomitant]
  5. SINGULAIR [Concomitant]

REACTIONS (4)
  - CHEST PAIN [None]
  - FEAR [None]
  - MALAISE [None]
  - PALPITATIONS [None]
